FAERS Safety Report 16168203 (Version 1)
Quarter: 2019Q2

REPORT INFORMATION
  Report Type: Spontaneous
  Country: US (occurrence: US)
  Receive Date: 20190408
  Receipt Date: 20190408
  Transmission Date: 20190711
  Serious: No
  Sender: FDA-Public Use
  Company Number: US-PFIZER INC-2019143544

PATIENT
  Age: 83 Year
  Sex: Female
  Weight: 56.7 kg

DRUGS (1)
  1. LYRICA [Suspect]
     Active Substance: PREGABALIN
     Indication: SCIATICA
     Dosage: 75 MG, 1X/DAY (PRESCRIBED AS 2 BUT SHE ONLY TOOK ONE)
     Route: 048
     Dates: start: 20190320

REACTIONS (3)
  - Hypersomnia [Not Recovered/Not Resolved]
  - Feeling abnormal [Not Recovered/Not Resolved]
  - Intentional product misuse [Unknown]

NARRATIVE: CASE EVENT DATE: 20190320
